FAERS Safety Report 23799825 (Version 1)
Quarter: 2024Q2

REPORT INFORMATION
  Report Type: Spontaneous
  Country: GB (occurrence: GB)
  Receive Date: 20240430
  Receipt Date: 20240430
  Transmission Date: 20240716
  Serious: Yes (Other)
  Sender: FDA-Public Use
  Company Number: None

PATIENT
  Age: 87 Year
  Sex: Male
  Weight: 65 kg

DRUGS (15)
  1. ALENDRONIC ACID [Suspect]
     Active Substance: ALENDRONIC ACID
     Dosage: SWALLOW WHOLE WITH...
     Route: 065
     Dates: start: 20240209
  2. LEVOTHYROXINE [Concomitant]
     Active Substance: LEVOTHYROXINE\LEVOTHYROXINE SODIUM
     Dosage: MORNING,
     Dates: start: 20231112
  3. LANOLIN\LIGHT MINERAL OIL\PARAFFIN [Concomitant]
     Active Substance: LANOLIN\LIGHT MINERAL OIL\PARAFFIN
     Dosage: TIME INTERVAL: AS NECESSARY: APPLY,
     Dates: start: 20231117, end: 20240115
  4. DIAZEPAM [Concomitant]
     Active Substance: DIAZEPAM
     Dosage: TO BE TAKEN UP TO THREE TIMES A DAY ...,
     Dates: start: 20240209, end: 20240214
  5. AMLODIPINE [Concomitant]
     Active Substance: AMLODIPINE BESYLATE
     Dates: start: 20231117, end: 20240330
  6. CITALOPRAM [Concomitant]
     Active Substance: CITALOPRAM\CITALOPRAM HYDROBROMIDE
     Dates: start: 20231117
  7. CODEINE PHOSPHATE [Concomitant]
     Active Substance: CODEINE PHOSPHATE
     Dosage: ONE OR TWO TABLETS  TO BE TAKEN UP TO FOUR TIME...,
     Dates: start: 20240206, end: 20240213
  8. CYANOCOBALAMIN [Concomitant]
     Active Substance: CYANOCOBALAMIN
     Dosage: USE AS DIRECTED
     Dates: start: 20240226
  9. DORZOLAMIDE [Concomitant]
     Active Substance: DORZOLAMIDE
     Dosage: IN THE AFFECTED...,
     Dates: start: 20231117
  10. ATORVASTATIN [Concomitant]
     Active Substance: ATORVASTATIN
     Dates: start: 20231117
  11. CALCIUM CARBONATE\CHOLECALCIFEROL [Concomitant]
     Active Substance: CALCIUM CARBONATE\CHOLECALCIFEROL
     Indication: Osteoporosis prophylaxis
     Dosage: TO HELP PREVENT OSTE...
     Dates: start: 20240209
  12. FERROUS SULFATE [Concomitant]
     Active Substance: FERROUS SULFATE
     Dosage: CONTINUE FOR...,
     Dates: start: 20240226
  13. COCODAMOL [Concomitant]
     Active Substance: ACETAMINOPHEN\CODEINE PHOSPHATE
     Dates: start: 20240209, end: 20240308
  14. BECLOMETHASONE DIPROPIONATE [Concomitant]
     Active Substance: BECLOMETHASONE DIPROPIONATE
     Dosage: PUFFS,
     Route: 055
     Dates: start: 20231117
  15. TIMOLOL [Concomitant]
     Active Substance: TIMOLOL
     Dosage: EACH MORNING IN BOTH EYES
     Route: 047
     Dates: start: 20231117

REACTIONS (1)
  - Confusional state [Recovered/Resolved]
